FAERS Safety Report 8434646-0 (Version None)
Quarter: 2012Q2

REPORT INFORMATION
  Report Type: 
  Country: None (occurrence: None)
  Receive Date: 20120323
  Receipt Date: 20111121
  Transmission Date: 20120825
  Serious: Yes (Hospitalization)
  Sender: FDA-Public Use
  Company Number: 163-21880-11083572

PATIENT
  Age: 85 Year
  Sex: Female

DRUGS (4)
  1. LENALIDOMIDE [Suspect]
     Indication: MULTIPLE MYELOMA
     Dosage: 10 MG, DAILY FOR 21 DAYS EVERY 4 WEEKS, PO
     Route: 048
     Dates: start: 20110301
  2. LASIX [Concomitant]
  3. METOPROLOL TARTRATE [Concomitant]
  4. DEXAMETHASONE [Concomitant]

REACTIONS (2)
  - NEOPLASM PROGRESSION [None]
  - MULTIPLE MYELOMA [None]
